FAERS Safety Report 7690709-9 (Version None)
Quarter: 2011Q3

REPORT INFORMATION
  Report Type: 
  Country: None (occurrence: None)
  Receive Date: 20110817
  Receipt Date: 20110817
  Transmission Date: 20111222
  Serious: Yes (Hospitalization)
  Sender: FDA-Public Use
  Company Number: None

PATIENT
  Sex: Male
  Weight: 106.5953 kg

DRUGS (11)
  1. TAXOTERE [Suspect]
     Indication: PROSTATE CANCER
     Dosage: 173 MG IVPB
     Dates: start: 20110713, end: 20110803
  2. BEVACIZUMAB 15MG/KG [Suspect]
     Indication: PROSTATE CANCER
     Dosage: 1643 MG IVPB
     Dates: start: 20110714, end: 20110811
  3. AMBIEN [Concomitant]
  4. MMX [Concomitant]
  5. METOPROLOL [Concomitant]
  6. ARANESP [Concomitant]
  7. RAD001 2.5MG [Suspect]
     Dosage: RAD001 2.5MG PO
     Route: 048
  8. BISMUTH SUBSALICYLATE [Concomitant]
  9. COMPAZINE [Concomitant]
  10. DECADRON [Concomitant]
  11. ZOFRAN [Concomitant]

REACTIONS (1)
  - FEBRILE NEUTROPENIA [None]
